FAERS Safety Report 9667644 (Version 1)
Quarter: 2013Q4

REPORT INFORMATION
  Report Type: Spontaneous
  Country: US (occurrence: US)
  Receive Date: 20131101
  Receipt Date: 20131101
  Transmission Date: 20140711
  Serious: No
  Sender: FDA-Public Use
  Company Number: US-SAVIENT-2012S1000079

PATIENT
  Sex: Male

DRUGS (13)
  1. KRYSTEXXA INJECTION [Suspect]
     Indication: GOUT
     Route: 042
  2. HYDROCORTISONE [Suspect]
     Indication: PREMEDICATION
  3. BENADRYL /01563701/ [Concomitant]
     Indication: PREMEDICATION
  4. VITAMIN C /00008001/ [Concomitant]
     Indication: ATRIAL FIBRILLATION
  5. GLUTATHIONE [Concomitant]
     Indication: ATRIAL FIBRILLATION
  6. PHOSPHOLIPIDS [Concomitant]
     Indication: ATRIAL FIBRILLATION
  7. ALL OTHER THERAPEUTIC PRODUCTS [Concomitant]
     Indication: ATRIAL FIBRILLATION
  8. ALL OTHER THERAPEUTIC PRODUCTS [Concomitant]
     Indication: ATRIAL FIBRILLATION
  9. COCONUT OIL [Concomitant]
     Indication: HYPERLIPIDAEMIA
  10. ALL OTHER THERAPEUTIC PRODUCTS [Concomitant]
     Indication: ATRIAL FIBRILLATION
  11. ALL OTHER THERAPEUTIC PRODUCTS [Concomitant]
     Indication: HYPERLIPIDAEMIA
  12. ALL OTHER THERAPEUTIC PRODUCTS [Concomitant]
     Indication: HYPERCHOLESTEROLAEMIA
  13. ALL OTHER THERAPEUTIC PRODUCTS [Concomitant]
     Indication: THYROID DISORDER

REACTIONS (10)
  - Inflammatory marker increased [Unknown]
  - Hypertension [Unknown]
  - Insomnia [Unknown]
  - Blood glucose increased [Unknown]
  - Anxiety [Unknown]
  - Pyrexia [Unknown]
  - Pain [Unknown]
  - Abasia [Unknown]
  - Gout [Unknown]
  - Chest pain [Unknown]
